FAERS Safety Report 24614625 (Version 1)
Quarter: 2024Q4

REPORT INFORMATION
  Report Type: Spontaneous
  Country: US (occurrence: US)
  Receive Date: 20241113
  Receipt Date: 20241113
  Transmission Date: 20250115
  Serious: No
  Sender: PFIZER
  Company Number: US-PFIZER INC-PV202400093247

PATIENT
  Age: 65 Year
  Sex: Female

DRUGS (1)
  1. XELJANZ [Suspect]
     Active Substance: TOFACITINIB CITRATE
     Dosage: UNK
     Dates: start: 202405

REACTIONS (5)
  - Insomnia [Unknown]
  - Rash [Unknown]
  - Bone pain [Unknown]
  - Arthralgia [Unknown]
  - Dysstasia [Unknown]

NARRATIVE: CASE EVENT DATE: 20240101
